FAERS Safety Report 9540794 (Version 1)
Quarter: 2013Q3

REPORT INFORMATION
  Report Type: Spontaneous
  Country: CA (occurrence: CA)
  Receive Date: 20130920
  Receipt Date: 20130920
  Transmission Date: 20140515
  Serious: Yes (Other)
  Sender: FDA-Public Use
  Company Number: CA-PFIZER INC-2013268285

PATIENT
  Age: 53 Year
  Sex: Female

DRUGS (2)
  1. SOMAVERT [Suspect]
     Dosage: 30 MG, 1X/DAY
     Dates: start: 2006
  2. OCTREOTIDE [Concomitant]
     Dosage: 50 UG/ML, 4X/DAY
     Route: 058

REACTIONS (4)
  - Nephrolithiasis [Not Recovered/Not Resolved]
  - Renal disorder [Unknown]
  - Abdominal pain [Unknown]
  - Blood urine present [Unknown]
